FAERS Safety Report 9866642 (Version 1)
Quarter: 2014Q1

REPORT INFORMATION
  Report Type: Spontaneous
  Country: US (occurrence: US)
  Receive Date: 20140204
  Receipt Date: 20140204
  Transmission Date: 20141002
  Serious: No
  Sender: FDA-Public Use
  Company Number: US-009507513-1401USA014479

PATIENT
  Sex: Male

DRUGS (3)
  1. JANUMET [Suspect]
     Dosage: UNK
  2. LANTUS [Suspect]
     Dosage: UNK
  3. HUMULIN [Suspect]
     Dosage: UNK

REACTIONS (1)
  - Drug ineffective [Unknown]
